FAERS Safety Report 15704374 (Version 2)
Quarter: 2020Q1

REPORT INFORMATION
  Report Type: Spontaneous
  Country: TH (occurrence: TH)
  Receive Date: 20181210
  Receipt Date: 20200316
  Transmission Date: 20200409
  Serious: Yes (Other)
  Sender: FDA-Public Use
  Company Number: TH-AMGEN-AUSSP2018173047

PATIENT
  Sex: Female

DRUGS (3)
  1. WARFARIN [Concomitant]
     Active Substance: WARFARIN
     Dosage: 18 MILLIGRAM, QWK
  2. PROLIA [Suspect]
     Active Substance: DENOSUMAB
     Indication: OSTEOPOROSIS POSTMENOPAUSAL
     Dosage: 60 MG/ML, UNK
     Route: 058
     Dates: start: 201701
  3. ENALAPRIL [Concomitant]
     Active Substance: ENALAPRIL
     Dosage: 10 MILLIGRAM, QD

REACTIONS (3)
  - Dental operation [Unknown]
  - Pulpitis dental [Unknown]
  - Osteonecrosis of jaw [Recovered/Resolved]

NARRATIVE: CASE EVENT DATE: 2018
